FAERS Safety Report 13981258 (Version 2)
Quarter: 2017Q4

REPORT INFORMATION
  Report Type: Spontaneous
  Country: JP (occurrence: JP)
  Receive Date: 20170918
  Receipt Date: 20171023
  Transmission Date: 20180321
  Serious: No
  Sender: FDA-Public Use
  Company Number: JP-009507513-1709JPN000851J

PATIENT

DRUGS (2)
  1. LAXOBERON [Suspect]
     Active Substance: SODIUM PICOSULFATE
     Dosage: UNK
     Route: 048
  2. STROMECTOL [Suspect]
     Active Substance: IVERMECTIN
     Indication: ACARODERMATITIS
     Dosage: UNK
     Route: 048

REACTIONS (2)
  - Vomiting [Unknown]
  - Diarrhoea [Unknown]
